FAERS Safety Report 8606160 (Version 3)
Quarter: 2013Q2

REPORT INFORMATION
  Report Type: Spontaneous
  Country: US (occurrence: US)
  Receive Date: 20120608
  Receipt Date: 20130417
  Transmission Date: 20140414
  Serious: Yes (Hospitalization, Other)
  Sender: FDA-Public Use
  Company Number: US-ASTRAZENECA-2010SE61160

PATIENT
  Age: 97 Year
  Sex: Female

DRUGS (2)
  1. ATACAND [Suspect]
     Route: 048
  2. TOPROL XL [Suspect]
     Route: 048

REACTIONS (6)
  - Cervical vertebral fracture [Unknown]
  - Suicidal ideation [Unknown]
  - Fall [Unknown]
  - Blindness [Unknown]
  - Type 2 diabetes mellitus [Unknown]
  - Macular degeneration [Unknown]
